FAERS Safety Report 23326885 (Version 1)
Quarter: 2023Q4

REPORT INFORMATION
  Report Type: Spontaneous
  Country: US (occurrence: US)
  Receive Date: 20231221
  Receipt Date: 20231221
  Transmission Date: 20240110
  Serious: Yes (Other)
  Sender: FDA-Public Use
  Company Number: US-PFIZER INC-PV202300204173

PATIENT
  Age: 58 Year
  Sex: Female
  Weight: 89.8 kg

DRUGS (4)
  1. RETACRIT [Suspect]
     Active Substance: EPOETIN ALFA-EPBX
     Indication: Chronic kidney disease
     Dosage: 10000 IU, WEEKLY X 8 DOSES
     Route: 058
  2. RETACRIT [Suspect]
     Active Substance: EPOETIN ALFA-EPBX
     Indication: Bone disorder
  3. RETACRIT [Suspect]
     Active Substance: EPOETIN ALFA-EPBX
     Indication: Anaemia
  4. DESVENLAFAXINE [Concomitant]
     Active Substance: DESVENLAFAXINE
     Dosage: TAKE 25 MG BY MOUTH 1 (ONE) TIME EACH DAY DO NOT CRUSH, CHEW, OR SPLIT
     Route: 048

REACTIONS (6)
  - Upper gastrointestinal haemorrhage [Unknown]
  - Erythropoietin deficiency anaemia [Unknown]
  - Glomerular filtration rate decreased [Unknown]
  - Haemoglobin decreased [Unknown]
  - Iron overload [Unknown]
  - Off label use [Unknown]
